FAERS Safety Report 5883976-5 (Version None)
Quarter: 2008Q3

REPORT INFORMATION
  Report Type: 
  Country: None (occurrence: None)
  Receive Date: 20080915
  Receipt Date: 20080902
  Transmission Date: 20090109
  Serious: Yes (Death, Other)
  Sender: FDA-Public Use
  Company Number: NZ-ROCHE-584087

PATIENT
  Sex: Male

DRUGS (2)
  1. XELODA [Suspect]
     Indication: COLON CANCER
     Route: 048
  2. OXALIPLATIN [Concomitant]
     Indication: COLON CANCER

REACTIONS (2)
  - EPIGASTRIC DISCOMFORT [None]
  - MYOCARDIAL INFARCTION [None]
